FAERS Safety Report 9267245 (Version 1)
Quarter: 2013Q2

REPORT INFORMATION
  Report Type: Report from Study
  Country: US (occurrence: US)
  Receive Date: 20130502
  Receipt Date: 20130502
  Transmission Date: 20140414
  Serious: Yes (Other)
  Sender: FDA-Public Use
  Company Number: PHEH2013US005367

PATIENT
  Age: 56 Year
  Sex: Female
  Weight: 51.7 kg

DRUGS (8)
  1. ZOMETA [Suspect]
     Indication: BREAST CANCER METASTATIC
     Dosage: UNK UKN, UNK
     Dates: start: 201111, end: 201205
  2. AFINITOR [Suspect]
     Dosage: 10 MG, EVERY DAY
     Route: 048
     Dates: start: 201209
  3. AFINITOR [Suspect]
     Dosage: 5 MG, EVERY DAY
     Route: 048
     Dates: start: 20130121
  4. LETROZOL [Concomitant]
     Dosage: UNK UKN, UNK
  5. VALIUM [Concomitant]
     Dosage: UNK UKN, UNK
  6. MORPHINE SULFATE [Concomitant]
     Dosage: UNK UKN, UNK
  7. MAXALT [Concomitant]
  8. XGEVA [Concomitant]

REACTIONS (6)
  - Osteonecrosis of jaw [Unknown]
  - White blood cell count decreased [Unknown]
  - Wrong technique in drug usage process [Unknown]
  - Headache [Unknown]
  - Nausea [Recovering/Resolving]
  - Vomiting [Recovering/Resolving]
